FAERS Safety Report 8360370-9 (Version None)
Quarter: 2012Q1

REPORT INFORMATION
  Report Type: 
  Country: None (occurrence: None)
  Receive Date: 20120323
  Receipt Date: 20110426
  Transmission Date: 20120608
  Serious: Yes (Disabling)
  Sender: FDA-Public Use
  Company Number: 163-21880-11043553

PATIENT
  Age: 71 Year
  Sex: Male

DRUGS (1)
  1. REVLIMID [Suspect]
     Indication: MULTIPLE MYELOMA
     Dosage: 15 MG, 1 IN 1 D, PO
     Route: 048
     Dates: start: 20100224, end: 20101120

REACTIONS (5)
  - DISEASE PROGRESSION [None]
  - BODY TEMPERATURE FLUCTUATION [None]
  - BONE PAIN [None]
  - ASTHENIA [None]
  - FATIGUE [None]
